FAERS Safety Report 4540882-6 (Version None)
Quarter: 2004Q4

REPORT INFORMATION
  Report Type: 
  Country: None (occurrence: None)
  Receive Date: 20041228
  Receipt Date: 20041220
  Transmission Date: 20050328
  Serious: Yes (Hospitalization)
  Sender: FDA-Public Use
  Company Number: 2002GB00257

PATIENT
  Age: 54 Year
  Sex: Female

DRUGS (1)
  1. LISINOPRIL [Suspect]
     Indication: VENTRICULAR DYSFUNCTION

REACTIONS (4)
  - CORONARY REVASCULARISATION [None]
  - COUGH [None]
  - THERAPY NON-RESPONDER [None]
  - WOUND DEHISCENCE [None]
